FAERS Safety Report 6671679-9 (Version None)
Quarter: 2010Q2

REPORT INFORMATION
  Report Type: 
  Country: None (occurrence: None)
  Receive Date: 20100406
  Receipt Date: 20100406
  Transmission Date: 20101027
  Serious: Yes (Other)
  Sender: FDA-Public Use
  Company Number: None

PATIENT
  Age: 52 Year
  Sex: Female
  Weight: 80.2867 kg

DRUGS (1)
  1. LEVAQUIN [Suspect]
     Indication: DIVERTICULITIS
     Dosage: 750MG 1 A DAY FOR 10 DAY PO
     Route: 048
     Dates: start: 20100304, end: 20100314

REACTIONS (4)
  - ARTHRALGIA [None]
  - DEPRESSION [None]
  - FATIGUE [None]
  - MYOSITIS [None]
